FAERS Safety Report 26196725 (Version 1)
Quarter: 2025Q4

REPORT INFORMATION
  Report Type: Spontaneous
  Country: EU (occurrence: EU)
  Receive Date: 20251224
  Receipt Date: 20251224
  Transmission Date: 20260118
  Serious: No
  Sender: ABBVIE
  Company Number: EU-BAYER-2025A159514

PATIENT
  Sex: Female

DRUGS (1)
  1. LEVONORGESTREL [Suspect]
     Active Substance: LEVONORGESTREL
     Indication: Product used for unknown indication
     Dosage: TIME INTERVAL: AS NECESSARY
     Route: 015

REACTIONS (4)
  - Maternal exposure during pregnancy [Unknown]
  - Device expulsion [Recovered/Resolved]
  - Drug ineffective [Unknown]
  - Pregnancy on contraceptive [Unknown]
